FAERS Safety Report 7521650-X (Version None)
Quarter: 2011Q2

REPORT INFORMATION
  Report Type: 
  Country: None (occurrence: None)
  Receive Date: 20110524
  Receipt Date: 20110512
  Transmission Date: 20111010
  Serious: Yes (Hospitalization)
  Sender: FDA-Public Use
  Company Number: 2011S1000033

PATIENT
  Sex: Male

DRUGS (8)
  1. ANTIHISTAMINE [Concomitant]
  2. COLCHICINE [Suspect]
     Indication: GOUT
     Dosage: 0.6 MG; QCD
     Dates: start: 20090101, end: 20110418
  3. KYRSTEXXA INJECTION (8 MG) [Suspect]
     Indication: GOUT
     Dosage: 8 MG; IV, 8 MG; IV, 8 MG; IV
     Route: 042
     Dates: start: 20110307, end: 20110307
  4. KYRSTEXXA INJECTION (8 MG) [Suspect]
     Indication: GOUT
     Dosage: 8 MG; IV, 8 MG; IV, 8 MG; IV
     Route: 042
     Dates: start: 20110321, end: 20110321
  5. KYRSTEXXA INJECTION (8 MG) [Suspect]
     Indication: GOUT
     Dosage: 8 MG; IV, 8 MG; IV, 8 MG; IV
     Route: 042
     Dates: start: 20110404, end: 20110404
  6. PREDNISONE [Concomitant]
  7. ANAKINRA [Concomitant]
  8. STEROID [Concomitant]

REACTIONS (9)
  - FATIGUE [None]
  - HEPATOCELLULAR INJURY [None]
  - BLOOD ALKALINE PHOSPHATASE INCREASED [None]
  - HEPATOTOXICITY [None]
  - MALAISE [None]
  - URINE OUTPUT DECREASED [None]
  - RENAL FAILURE ACUTE [None]
  - BLOOD CREATININE INCREASED [None]
  - TRANSAMINASES INCREASED [None]
